FAERS Safety Report 23068903 (Version 2)
Quarter: 2023Q4

REPORT INFORMATION
  Report Type: Spontaneous
  Country: US (occurrence: US)
  Receive Date: 20231016
  Receipt Date: 20231207
  Transmission Date: 20240109
  Serious: Yes (Death, Other)
  Sender: FDA-Public Use
  Company Number: US-KOREA IPSEN Pharma-2023-23719

PATIENT
  Age: 62 Year
  Sex: Female
  Weight: 76.8 kg

DRUGS (1)
  1. SOMATULINE DEPOT [Suspect]
     Active Substance: LANREOTIDE ACETATE
     Indication: Neuroendocrine tumour
     Route: 058

REACTIONS (5)
  - Adult failure to thrive [Fatal]
  - Pancreatic carcinoma [Fatal]
  - Metastases to liver [Fatal]
  - Biliary obstruction [Fatal]
  - Malignant neoplasm progression [Fatal]

NARRATIVE: CASE EVENT DATE: 20221029
